FAERS Safety Report 14350879 (Version 1)
Quarter: 2018Q1

REPORT INFORMATION
  Report Type: Spontaneous
  Country: GB (occurrence: GB)
  Receive Date: 20180104
  Receipt Date: 20180104
  Transmission Date: 20180509
  Serious: Yes (Other)
  Sender: FDA-Public Use
  Company Number: GB-SA-2017SA267915

PATIENT

DRUGS (1)
  1. ALEMTUZUMAB [Suspect]
     Active Substance: ALEMTUZUMAB
     Indication: MULTIPLE SCLEROSIS
     Route: 041

REACTIONS (6)
  - Sarcoidosis [Unknown]
  - Granuloma [Unknown]
  - Lymphadenopathy [Unknown]
  - Dyspnoea [Unknown]
  - Chest pain [Unknown]
  - Computerised tomogram abnormal [Unknown]
